FAERS Safety Report 7730184-9 (Version None)
Quarter: 2011Q3

REPORT INFORMATION
  Report Type: 
  Country: None (occurrence: None)
  Receive Date: 20110906
  Receipt Date: 20110830
  Transmission Date: 20111222
  Serious: Yes (Death, Life-Threatening, Other)
  Sender: FDA-Public Use
  Company Number: PHHY2010JP61451

PATIENT
  Sex: Female
  Weight: 40 kg

DRUGS (5)
  1. NEORAL [Suspect]
     Dosage: 50 MG, BID
     Route: 048
     Dates: start: 20100907, end: 20100909
  2. NEORAL [Suspect]
     Indication: HISTIOCYTOSIS HAEMATOPHAGIC
     Dosage: 50 MG, QD
     Route: 048
     Dates: start: 20100902, end: 20100903
  3. NEORAL [Suspect]
     Dosage: 125 MG, UNK
     Route: 048
     Dates: start: 20100915, end: 20100924
  4. NEORAL [Suspect]
     Dosage: 150 MG, QD
     Route: 048
     Dates: start: 20100910, end: 20100914
  5. NEORAL [Suspect]
     Dosage: 75 MG, UNK
     Route: 048
     Dates: start: 20100904, end: 20100906

REACTIONS (20)
  - RENAL FAILURE ACUTE [None]
  - BLOOD PRESSURE DECREASED [None]
  - PULMONARY CONGESTION [None]
  - PNEUMONIA BACTERIAL [None]
  - PYURIA [None]
  - CREATININE RENAL CLEARANCE DECREASED [None]
  - PYREXIA [None]
  - ASPERGILLOSIS [None]
  - CYTOMEGALOVIRUS INFECTION [None]
  - SEPTIC SHOCK [None]
  - PROTEIN URINE PRESENT [None]
  - OLIGURIA [None]
  - HEART RATE DECREASED [None]
  - ANURIA [None]
  - SEPSIS [None]
  - TACHYCARDIA [None]
  - STENOTROPHOMONAS INFECTION [None]
  - PYELONEPHRITIS [None]
  - BLOOD URINE PRESENT [None]
  - URINARY TRACT INFECTION [None]
